FAERS Safety Report 5497136-3 (Version None)
Quarter: 2007Q4

REPORT INFORMATION
  Report Type: 
  Country: None (occurrence: None)
  Receive Date: 20071025
  Receipt Date: 20070710
  Transmission Date: 20080405
  Serious: No
  Sender: FDA-Public Use
  Company Number: A0378169A

PATIENT
  Age: 49 Year
  Sex: Female

DRUGS (6)
  1. ADVAIR DISKUS 100/50 [Suspect]
     Indication: ASTHMA
     Dosage: 1PUFF TWICE PER DAY
     Route: 055
     Dates: start: 20020101
  2. SINGULAIR [Concomitant]
  3. UNIPHYL [Concomitant]
  4. SINGULAIR [Concomitant]
     Route: 048
  5. ASPIRIN [Concomitant]
  6. ACTONEL [Concomitant]

REACTIONS (3)
  - DYSPHONIA [None]
  - OSTEOPENIA [None]
  - OSTEOPOROSIS [None]
